FAERS Safety Report 7475066-5 (Version None)
Quarter: 2011Q2

REPORT INFORMATION
  Report Type: 
  Country: None (occurrence: None)
  Receive Date: 20110505
  Receipt Date: 20110222
  Transmission Date: 20111010
  Serious: Yes (Other)
  Sender: FDA-Public Use
  Company Number: SE-ACCORD-008146

PATIENT
  Age: 65 Year
  Sex: Female

DRUGS (2)
  1. ANASTROZOLE [Suspect]
     Indication: BREAST CANCER RECURRENT
     Dosage: 1.00-MG-1.0DAYS
     Dates: end: 20050101
  2. TAMOXIFEN CITRATE [Concomitant]

REACTIONS (8)
  - WEIGHT DECREASED [None]
  - BLOOD PARATHYROID HORMONE INCREASED [None]
  - FLUID RETENTION [None]
  - HYPOCALCAEMIA [None]
  - FATIGUE [None]
  - OSTEOPENIA [None]
  - THIRST [None]
  - HYPERCALCAEMIA [None]
